FAERS Safety Report 5982106-9 (Version None)
Quarter: 2008Q4

REPORT INFORMATION
  Report Type: 
  Country: None (occurrence: None)
  Receive Date: 20081202
  Receipt Date: 20081117
  Transmission Date: 20090506
  Serious: Yes (Death, Hospitalization)
  Sender: FDA-Public Use
  Company Number: 2008AL011821

PATIENT
  Age: 3 Year
  Sex: Male
  Weight: 16.7 kg

DRUGS (9)
  1. FEVERALL [Suspect]
     Indication: ANALGESIA
     Dosage: 650 MG;X1;RTL
     Route: 054
  2. ONDANSETRON [Concomitant]
  3. DEXAMETHASONE [Concomitant]
  4. SEVOFLURANE [Concomitant]
  5. PROPOFOL [Concomitant]
  6. OXYGEN [Concomitant]
  7. NITROUS OXIDE [Concomitant]
  8. OMEPRAZOLE [Concomitant]
  9. MORPHINE [Concomitant]

REACTIONS (10)
  - AGGRESSION [None]
  - APNOEA [None]
  - B PRECURSOR TYPE ACUTE LEUKAEMIA [None]
  - CYANOSIS [None]
  - HYPOXIC ENCEPHALOPATHY [None]
  - ISCHAEMIA [None]
  - RESPIRATORY DEPRESSION [None]
  - STRIDOR [None]
  - TUMOUR LYSIS SYNDROME [None]
  - UNRESPONSIVE TO STIMULI [None]
